FAERS Safety Report 8317950-6 (Version None)
Quarter: 2012Q2

REPORT INFORMATION
  Report Type: 
  Country: None (occurrence: None)
  Receive Date: 20120427
  Receipt Date: 20120420
  Transmission Date: 20120825
  Serious: Yes (Other)
  Sender: FDA-Public Use
  Company Number: US-ASTRAZENECA-2010SE14917

PATIENT
  Age: 45 Year
  Sex: Male
  Weight: 127 kg

DRUGS (14)
  1. SEROQUEL [Suspect]
     Indication: BIPOLAR DISORDER
     Route: 048
  2. SEROQUEL [Suspect]
     Dosage: TAKING ONE TABLET INSTEAD OF TWO
     Route: 048
  3. COUMADIN [Concomitant]
     Indication: ANTICOAGULANT THERAPY
  4. SEROQUEL [Suspect]
     Route: 048
  5. SEROQUEL [Suspect]
     Dosage: TAKING TWO TABLETS AS PRESCRIBED
     Route: 048
  6. SEROQUEL [Suspect]
     Route: 048
  7. VICODIN [Concomitant]
     Indication: PAIN
  8. SEROQUEL [Suspect]
     Route: 048
     Dates: start: 20080101
  9. NEXIUM [Suspect]
     Indication: GASTROOESOPHAGEAL REFLUX DISEASE
     Route: 048
  10. SEROQUEL [Suspect]
     Route: 048
  11. SEROQUEL [Suspect]
     Dosage: HALF THE PILL
     Route: 048
     Dates: start: 20090102
  12. NEXIUM [Suspect]
     Route: 048
  13. METFORMIN HCL [Concomitant]
     Indication: GLUCOSE TOLERANCE IMPAIRED
  14. CLONAZEPAM [Concomitant]

REACTIONS (17)
  - HYPERSOMNIA [None]
  - ROAD TRAFFIC ACCIDENT [None]
  - BIPOLAR DISORDER [None]
  - GASTROOESOPHAGEAL REFLUX DISEASE [None]
  - MOOD SWINGS [None]
  - SLEEP DISORDER [None]
  - IMPAIRED DRIVING ABILITY [None]
  - IMPAIRED WORK ABILITY [None]
  - SOMNOLENCE [None]
  - INTENTIONAL DRUG MISUSE [None]
  - GAIT DISTURBANCE [None]
  - FATIGUE [None]
  - WEIGHT DECREASED [None]
  - PANIC ATTACK [None]
  - RESTLESS LEGS SYNDROME [None]
  - DIZZINESS [None]
  - FEELING ABNORMAL [None]
